FAERS Safety Report 20201892 (Version 5)
Quarter: 2022Q4

REPORT INFORMATION
  Report Type: Spontaneous
  Country: CA (occurrence: CA)
  Receive Date: 20211217
  Receipt Date: 20221024
  Transmission Date: 20230112
  Serious: Yes (Other)
  Sender: FDA-Public Use
  Company Number: CA-BAUSCH-BL-2021-041514

PATIENT
  Age: 83 Year
  Sex: Female

DRUGS (11)
  1. SILIQ [Suspect]
     Active Substance: BRODALUMAB
     Indication: Psoriasis
     Route: 058
  2. SILIQ [Suspect]
     Active Substance: BRODALUMAB
     Route: 058
  3. SILIQ [Suspect]
     Active Substance: BRODALUMAB
     Route: 058
  4. BRODALUMAB [Suspect]
     Active Substance: BRODALUMAB
     Indication: Psoriasis
     Route: 058
  5. BRODALUMAB [Suspect]
     Active Substance: BRODALUMAB
  6. VAXZEVRIA [Suspect]
     Active Substance: AZD-1222
     Indication: COVID-19 immunisation
     Dosage: VAXZEVRIA VIAL CONTAINS 10 DOSES OF 0.5ML
     Route: 030
  7. ATORVASTATIN [Concomitant]
     Active Substance: ATORVASTATIN
     Indication: Product used for unknown indication
     Route: 065
  8. BACLOFEN [Concomitant]
     Active Substance: BACLOFEN
     Indication: Product used for unknown indication
     Route: 065
  9. FUROSEMIDE [Concomitant]
     Active Substance: FUROSEMIDE
     Indication: Product used for unknown indication
     Route: 065
  10. INDAPAMIDE\PERINDOPRIL ERBUMINE [Concomitant]
     Active Substance: INDAPAMIDE\PERINDOPRIL ERBUMINE
     Indication: Product used for unknown indication
     Route: 065
  11. ATORVASTATIN [Concomitant]
     Active Substance: ATORVASTATIN
     Indication: Product used for unknown indication
     Route: 065

REACTIONS (19)
  - Psoriatic arthropathy [Unknown]
  - Arthritis [Unknown]
  - Limb mass [Unknown]
  - Peripheral swelling [Unknown]
  - Pruritus [Unknown]
  - Psoriasis [Unknown]
  - Somnolence [Unknown]
  - Vaccination site discharge [Not Recovered/Not Resolved]
  - Vaccination site vesicles [Not Recovered/Not Resolved]
  - Vaccination site haemorrhage [Not Recovered/Not Resolved]
  - Muscular weakness [Unknown]
  - Pain [Unknown]
  - Thyroid function test abnormal [Unknown]
  - Fatigue [Unknown]
  - Infection [Unknown]
  - Headache [Unknown]
  - Injection site discharge [Unknown]
  - Injection site haemorrhage [Unknown]
  - Injection site vesicles [Unknown]
